FAERS Safety Report 9163993 (Version 3)
Quarter: 2013Q2

REPORT INFORMATION
  Report Type: Spontaneous
  Country: DK (occurrence: JP)
  Receive Date: 20130314
  Receipt Date: 20130501
  Transmission Date: 20140414
  Serious: Yes (Life-Threatening)
  Sender: FDA-Public Use
  Company Number: JP-FRI-1000043367

PATIENT
  Age: 47 Year
  Sex: Female

DRUGS (8)
  1. LEXAPRO [Suspect]
     Indication: BIPOLAR I DISORDER
     Dosage: 10 MG
     Route: 048
     Dates: start: 20121101, end: 20121110
  2. AMOXAN [Concomitant]
     Indication: BIPOLAR I DISORDER
     Dosage: 100 MG
     Route: 048
     Dates: start: 20060804
  3. TOFRANIL [Concomitant]
     Indication: BIPOLAR I DISORDER
     Dosage: 25 MG
     Route: 048
  4. TOFRANIL [Concomitant]
     Dosage: 150 MG
     Route: 048
  5. TETRAMIDE [Concomitant]
     Indication: BIPOLAR I DISORDER
     Dosage: 20 MG
     Route: 048
     Dates: start: 20060804
  6. TRYPTANOL [Concomitant]
     Indication: BIPOLAR I DISORDER
     Dosage: 10 MG
     Route: 048
     Dates: start: 20060804
  7. LITHIUM CARBONATE [Concomitant]
     Indication: BIPOLAR I DISORDER
     Dosage: 100 MG
     Route: 048
     Dates: start: 20060804
  8. DOGMATYL [Concomitant]
     Route: 048

REACTIONS (1)
  - Altered state of consciousness [Recovered/Resolved]
